FAERS Safety Report 18904265 (Version 1)
Quarter: 2021Q1

REPORT INFORMATION
  Report Type: Spontaneous
  Country: US (occurrence: US)
  Receive Date: 20210217
  Receipt Date: 20210217
  Transmission Date: 20210420
  Serious: Yes (Hospitalization)
  Sender: FDA-Public Use
  Company Number: US-ASTRAZENECA-2021A048807

PATIENT
  Sex: Female
  Weight: 70.3 kg

DRUGS (5)
  1. SYMBICORT [Suspect]
     Active Substance: BUDESONIDE\FORMOTEROL FUMARATE DIHYDRATE
     Indication: CHRONIC OBSTRUCTIVE PULMONARY DISEASE
     Dosage: 160/4.5 MCG. 2 PUFFS TWO TIMES A DAY
     Route: 055
     Dates: start: 2014
  2. SYMBICORT [Suspect]
     Active Substance: BUDESONIDE\FORMOTEROL FUMARATE DIHYDRATE
     Indication: ASTHMA
     Dosage: 160/4.5 MCG. 2 PUFFS TWO TIMES A DAY
     Route: 055
     Dates: start: 2014
  3. BENICAR GENERIC [Suspect]
     Active Substance: OLMESARTAN MEDOXOMIL
     Indication: BLOOD PRESSURE MEASUREMENT
     Route: 065
  4. BUDESONIDE AND FORMOTEROL [Suspect]
     Active Substance: BUDESONIDE\FORMOTEROL
     Indication: CHRONIC OBSTRUCTIVE PULMONARY DISEASE
     Dosage: 160/4.5 MCG., 2 PUFFS TWICE A DAY, TWO TIMES A DAY
     Route: 055
     Dates: start: 202101
  5. BUDESONIDE AND FORMOTEROL [Suspect]
     Active Substance: BUDESONIDE\FORMOTEROL
     Indication: ASTHMA
     Dosage: 160/4.5 MCG., 2 PUFFS TWICE A DAY, TWO TIMES A DAY
     Route: 055
     Dates: start: 202101

REACTIONS (4)
  - Illness [Recovered/Resolved]
  - Drug hypersensitivity [Not Recovered/Not Resolved]
  - Therapy non-responder [Not Recovered/Not Resolved]
  - Chest discomfort [Not Recovered/Not Resolved]
